FAERS Safety Report 8175451-2 (Version None)
Quarter: 2012Q1

REPORT INFORMATION
  Report Type: 
  Country: None (occurrence: None)
  Receive Date: 20120229
  Receipt Date: 20101217
  Transmission Date: 20120608
  Serious: Yes (Death)
  Sender: FDA-Public Use
  Company Number: PHHY2010NL093586

PATIENT
  Sex: Male

DRUGS (2)
  1. COMBIVENT [Concomitant]
  2. TOBI [Suspect]
     Indication: CHRONIC OBSTRUCTIVE PULMONARY DISEASE
     Dates: start: 20090101

REACTIONS (2)
  - DEATH [None]
  - DYSPNOEA [None]
